FAERS Safety Report 8758168 (Version 1)
Quarter: 2012Q4

REPORT INFORMATION
  Report Type: 
  Country: US (occurrence: US)
  Receive Date: 20120828
  Receipt Date: 20120828
  Transmission Date: 20130627
  Serious: Yes (Other)
  Sender: FDA-Public Use
  Company Number: CHPA2012US017784

PATIENT
  Age: 74 Year
  Sex: Female

DRUGS (1)
  1. TROLAMINE SALICYLATE [Suspect]
     Indication: NEUROPATHY PERIPHERAL
     Dosage: UNK, 3-4 times per week
     Route: 061

REACTIONS (7)
  - Foot deformity [Recovered/Resolved]
  - Bunion [Recovered/Resolved]
  - Rotator cuff syndrome [Not Recovered/Not Resolved]
  - Hypoaesthesia [Not Recovered/Not Resolved]
  - Insomnia [Unknown]
  - Therapeutic response unexpected [Unknown]
  - Off label use [Unknown]
